FAERS Safety Report 25834488 (Version 2)
Quarter: 2025Q4

REPORT INFORMATION
  Report Type: Spontaneous
  Country: US (occurrence: US)
  Receive Date: 20250923
  Receipt Date: 20251001
  Transmission Date: 20260117
  Serious: No
  Sender: AMGEN
  Company Number: US-AMGEN-USASP2025187003

PATIENT

DRUGS (1)
  1. MVASI [Suspect]
     Active Substance: BEVACIZUMAB-AWWB
     Indication: Ovarian cancer
     Dosage: UNK, (DOSE REQUESTED: 400 MILLIGRAM X 1, 100 MILLIGRAM X 3)
     Route: 065
     Dates: start: 20250701

REACTIONS (1)
  - Platelet count abnormal [Unknown]
